FAERS Safety Report 18978885 (Version 1)
Quarter: 2021Q1

REPORT INFORMATION
  Report Type: Spontaneous
  Country: MY (occurrence: MY)
  Receive Date: 20210308
  Receipt Date: 20210308
  Transmission Date: 20210420
  Serious: Yes (Other)
  Sender: FDA-Public Use
  Company Number: MY-SUN PHARMACEUTICAL INDUSTRIES LTD-2021R1-282625

PATIENT
  Age: 30 Year
  Sex: Female

DRUGS (1)
  1. DEXAMETHASONE. [Suspect]
     Active Substance: DEXAMETHASONE
     Indication: NEONATAL RESPIRATORY DISTRESS SYNDROME PROPHYLAXIS
     Dosage: 12 MILLIGRAM, 1DOSE/12HOUR
     Route: 030

REACTIONS (3)
  - Maternal exposure during pregnancy [Unknown]
  - Familial periodic paralysis [Recovered/Resolved]
  - Live birth [Unknown]
